FAERS Safety Report 16016610 (Version 1)
Quarter: 2019Q1

REPORT INFORMATION
  Report Type: Spontaneous
  Country: US (occurrence: US)
  Receive Date: 20190228
  Receipt Date: 20190228
  Transmission Date: 20190418
  Serious: No
  Sender: FDA-Public Use
  Company Number: US-BAYER-2019-042112

PATIENT
  Age: 76 Year
  Sex: Female
  Weight: 63 kg

DRUGS (2)
  1. MIRAFIBER CAPLETS [Concomitant]
     Active Substance: CITRIC ACID MONOHYDRATE\METHYLCELLULOSE
     Route: 048
     Dates: start: 20190226
  2. MIRALAX [Suspect]
     Active Substance: POLYETHYLENE GLYCOL 3350
     Indication: CONSTIPATION
     Dosage: 1 DF, QD
     Route: 048
     Dates: start: 20190226

REACTIONS (1)
  - Underdose [Unknown]
